FAERS Safety Report 24067210 (Version 1)
Quarter: 2024Q3

REPORT INFORMATION
  Report Type: Spontaneous
  Country: US (occurrence: US)
  Receive Date: 20240709
  Receipt Date: 20240709
  Transmission Date: 20241017
  Serious: No
  Sender: ROCHE
  Company Number: ROCHE-10000019010

PATIENT
  Age: 27 Year
  Sex: Female

DRUGS (1)
  1. OCREVUS [Suspect]
     Active Substance: OCRELIZUMAB
     Indication: Product used for unknown indication
     Dosage: DATE OF TREATMENT: 24-JUN-2024
     Route: 042
     Dates: start: 20240624

REACTIONS (2)
  - Throat irritation [Unknown]
  - Throat tightness [Unknown]
